FAERS Safety Report 15787544 (Version 3)
Quarter: 2019Q1

REPORT INFORMATION
  Report Type: Spontaneous
  Country: US (occurrence: US)
  Receive Date: 20190103
  Receipt Date: 20190327
  Transmission Date: 20190417
  Serious: No
  Sender: FDA-Public Use
  Company Number: US-BAUSCH-BL-2018-013654

PATIENT
  Sex: Female
  Weight: 63.56 kg

DRUGS (7)
  1. PAXIL [Concomitant]
     Active Substance: PAROXETINE HYDROCHLORIDE
     Indication: PRODUCT USED FOR UNKNOWN INDICATION
  2. CARVETILOL [Concomitant]
     Indication: PRODUCT USED FOR UNKNOWN INDICATION
     Route: 048
  3. LOSARTAN AND HYDROCHLOROTHIAZIDE [Concomitant]
     Active Substance: HYDROCHLOROTHIAZIDE\LOSARTAN POTASSIUM
     Indication: PRODUCT USED FOR UNKNOWN INDICATION
     Route: 048
  4. UCERIS [Suspect]
     Active Substance: BUDESONIDE
     Indication: COLITIS MICROSCOPIC
     Dosage: STARTED A COUPLE OF YEARS
     Route: 048
     Dates: end: 201809
  5. UCERIS [Suspect]
     Active Substance: BUDESONIDE
     Indication: DIARRHOEA
     Route: 048
     Dates: start: 201812, end: 201812
  6. UCERIS [Suspect]
     Active Substance: BUDESONIDE
     Indication: OFF LABEL USE
     Route: 048
     Dates: start: 20181227, end: 201903
  7. SIMVASTATIN. [Concomitant]
     Active Substance: SIMVASTATIN
     Indication: PRODUCT USED FOR UNKNOWN INDICATION
     Route: 048

REACTIONS (12)
  - Asthenia [Recovering/Resolving]
  - Night sweats [Recovering/Resolving]
  - Decreased appetite [Unknown]
  - Inability to afford medication [Unknown]
  - Feeling of body temperature change [Recovering/Resolving]
  - Therapy cessation [Unknown]
  - Movement disorder [Not Recovered/Not Resolved]
  - Off label use [Unknown]
  - Feeling abnormal [Unknown]
  - Insomnia [Recovering/Resolving]
  - Diarrhoea [Unknown]
  - Product supply issue [Unknown]

NARRATIVE: CASE EVENT DATE: 2018
